FAERS Safety Report 4378018-7 (Version None)
Quarter: 2004Q2

REPORT INFORMATION
  Report Type: 
  Country: None (occurrence: None)
  Receive Date: 20040615
  Receipt Date: 20040615
  Transmission Date: 20050107
  Serious: Yes (Death)
  Sender: FDA-Public Use
  Company Number: None

PATIENT
  Age: 61 Year
  Sex: Male
  Weight: 95.709 kg

DRUGS (5)
  1. FLUOXETINE [Suspect]
     Indication: MAJOR DEPRESSION
     Dosage: 20 MG DAILY ORAL
     Route: 048
     Dates: start: 20040105, end: 20040115
  2. LEXAPRO [Suspect]
     Dosage: 10 MG DAILY ORAL
     Route: 048
     Dates: start: 20040115, end: 20040121
  3. NADOLOL [Concomitant]
  4. TRIAMTERENE AND HYDROCHLOROTHIAZIDE [Concomitant]
  5. ALLEGRA [Concomitant]

REACTIONS (1)
  - COMPLETED SUICIDE [None]
